FAERS Safety Report 20344387 (Version 6)
Quarter: 2024Q4

REPORT INFORMATION
  Report Type: Report from Study
  Country: US (occurrence: US)
  Receive Date: 20220118
  Receipt Date: 20241015
  Transmission Date: 20250115
  Serious: No
  Sender: NOVARTIS
  Company Number: US-NOVARTISTESTPH-NVSC2022US007902

PATIENT
  Sex: Female

DRUGS (1)
  1. KESIMPTA [Suspect]
     Active Substance: OFATUMUMAB
     Indication: Multiple sclerosis
     Dosage: 20 MG (BENEATH THE SKIN, USUALLY VIA INJECTION)
     Route: 058
     Dates: start: 20211020

REACTIONS (6)
  - Headache [Recovering/Resolving]
  - Fall [Unknown]
  - Hypokinesia [Unknown]
  - Platelet count increased [Recovering/Resolving]
  - White blood cell count increased [Recovering/Resolving]
  - Migraine [Unknown]
